FAERS Safety Report 5215752-0 (Version None)
Quarter: 2007Q1

REPORT INFORMATION
  Report Type: 
  Country: None (occurrence: None)
  Receive Date: 20070116
  Receipt Date: 20070102
  Transmission Date: 20070707
  Serious: Yes (Life-Threatening, Hospitalization)
  Sender: FDA-Public Use
  Company Number: 15447

PATIENT
  Age: 76 Year
  Sex: Female
  Weight: 67.4 kg

DRUGS (4)
  1. BLEOMYCIN [Suspect]
     Indication: HODGKIN'S DISEASE
     Dosage: 18000 IU IV
     Route: 042
     Dates: start: 20060922
  2. ASPIRIN [Concomitant]
  3. LANSOPRAZOLE [Concomitant]
  4. SIMVASTATIN [Concomitant]

REACTIONS (1)
  - RESPIRATORY FAILURE [None]
